FAERS Safety Report 4558634-X (Version None)
Quarter: 2005Q1

REPORT INFORMATION
  Report Type: 
  Country: None (occurrence: None)
  Receive Date: 20050119
  Receipt Date: 20050107
  Transmission Date: 20050727
  Serious: Yes (Hospitalization)
  Sender: FDA-Public Use
  Company Number: 001-0981-996597

PATIENT
  Age: 67 Year
  Sex: Male
  Weight: 92.5338 kg

DRUGS (11)
  1. ATORVASTATIN (ATORVASTATIN) [Suspect]
     Indication: HYPERLIPIDAEMIA
     Dosage: SEE IMAGE
     Route: 048
     Dates: start: 19980812, end: 19981021
  2. ATORVASTATIN (ATORVASTATIN) [Suspect]
     Indication: HYPERLIPIDAEMIA
     Dosage: SEE IMAGE
     Route: 048
     Dates: start: 19981023
  3. PREDNISONE [Concomitant]
  4. DIGOXIN [Concomitant]
  5. IPRATROPIUM INHALER (IPRATROPIUM) [Concomitant]
  6. ACETYLSALICYLIC ACID SRT [Concomitant]
  7. CALCIUM (CALCIUM) [Concomitant]
  8. CENTRUM SILVER (ASCORBIC ACID, TOCOPHERYL ACETATE, RETINOL, ZINC, CALC [Concomitant]
  9. METHOTREXATE [Concomitant]
  10. MONTELUKAST (MONTELUKAST) [Concomitant]
  11. BECLOMETHASONE INHALER (BECLOMETASONE DIPROPIONATE) [Concomitant]

REACTIONS (16)
  - ATELECTASIS [None]
  - CHILLS [None]
  - DEHYDRATION [None]
  - DEPRESSED LEVEL OF CONSCIOUSNESS [None]
  - DIARRHOEA [None]
  - DISCOMFORT [None]
  - DIZZINESS [None]
  - FAECAL INCONTINENCE [None]
  - GASTRIC DISORDER [None]
  - HAEMATURIA [None]
  - LOSS OF CONSCIOUSNESS [None]
  - MUSCLE SPASMS [None]
  - NAUSEA [None]
  - PNEUMONIA [None]
  - PYURIA [None]
  - SEPSIS [None]
